FAERS Safety Report 20057468 (Version 2)
Quarter: 2021Q4

REPORT INFORMATION
  Report Type: Spontaneous
  Country: US (occurrence: US)
  Receive Date: 20211111
  Receipt Date: 20211115
  Transmission Date: 20220304
  Serious: No
  Sender: FDA-Public Use
  Company Number: US-GLAXOSMITHKLINE-USCH2021079857

PATIENT
  Age: 63 Year
  Sex: Female

DRUGS (1)
  1. SENSODYNE PRONAMEL GENTLE WHITENING [Suspect]
     Active Substance: POTASSIUM NITRATE\SODIUM FLUORIDE
     Indication: Dental cleaning
     Dosage: UNK
     Dates: start: 20211021, end: 20211023

REACTIONS (2)
  - Tongue discomfort [Recovered/Resolved]
  - Oral candidiasis [Unknown]

NARRATIVE: CASE EVENT DATE: 20211021
